FAERS Safety Report 21940754 (Version 1)
Quarter: 2023Q1

REPORT INFORMATION
  Report Type: Report from Study
  Country: US (occurrence: US)
  Receive Date: 20230201
  Receipt Date: 20230201
  Transmission Date: 20230418
  Serious: No
  Sender: FDA-Public Use
  Company Number: US-EXELIXIS-CABO-22052556

PATIENT
  Sex: Male

DRUGS (8)
  1. CABOMETYX [Suspect]
     Active Substance: CABOZANTINIB S-MALATE
     Indication: Thyroid cancer
     Dosage: 60 MG
     Dates: end: 202205
  2. FAMOTIDINE [Concomitant]
     Active Substance: FAMOTIDINE
  3. HYDROCHLOROTHIAZIDE [Concomitant]
     Active Substance: HYDROCHLOROTHIAZIDE
  4. IMITREX [Concomitant]
     Active Substance: SUMATRIPTAN SUCCINATE
  5. LEVOTHYROXINE [Concomitant]
     Active Substance: LEVOTHYROXINE
  6. LISINOPRIL [Concomitant]
     Active Substance: LISINOPRIL
  7. TRAMADOL [Concomitant]
     Active Substance: TRAMADOL
  8. TYLENOL [Concomitant]
     Active Substance: ACETAMINOPHEN

REACTIONS (1)
  - Drug intolerance [Unknown]
